FAERS Safety Report 4455978-7 (Version None)
Quarter: 2004Q3

REPORT INFORMATION
  Report Type: 
  Country: None (occurrence: None)
  Receive Date: 20040922
  Receipt Date: 20040906
  Transmission Date: 20050211
  Serious: Yes (Life-Threatening)
  Sender: FDA-Public Use
  Company Number: JP-GLAXOSMITHKLINE-B0344955A

PATIENT
  Weight: 2.2 kg

DRUGS (3)
  1. PAXIL [Suspect]
     Dosage: 10MG PER DAY
     Dates: start: 20030501
  2. ANAFRANIL [Suspect]
     Dosage: 10MG THREE TIMES PER DAY
     Dates: start: 20030501
  3. CONSTAN [Suspect]
     Dosage: .4MG THREE TIMES PER DAY
     Dates: start: 20030501

REACTIONS (3)
  - HYPERTONIA [None]
  - RESPIRATORY ACIDOSIS [None]
  - RESPIRATORY DEPRESSION [None]
